FAERS Safety Report 13519409 (Version 1)
Quarter: 2017Q2

REPORT INFORMATION
  Report Type: Report from Study
  Country: US (occurrence: US)
  Receive Date: 20170505
  Receipt Date: 20170505
  Transmission Date: 20170830
  Serious: Yes (Death)
  Sender: FDA-Public Use
  Company Number: US-ACTELION-A-US2014-105005

PATIENT
  Age: 60 Year
  Sex: Female

DRUGS (2)
  1. TRACLEER [Suspect]
     Active Substance: BOSENTAN
     Indication: PULMONARY ARTERIAL HYPERTENSION
     Dosage: UNK
     Route: 048
  2. TADALAFIL [Concomitant]
     Active Substance: TADALAFIL

REACTIONS (8)
  - Death [Fatal]
  - Aphasia [Unknown]
  - Syncope [Unknown]
  - Dizziness [Unknown]
  - Joint injury [Unknown]
  - Drug dose omission [Unknown]
  - Head injury [Unknown]
  - Dyspnoea [Unknown]
